FAERS Safety Report 9709409 (Version 64)
Quarter: 2020Q2

REPORT INFORMATION
  Report Type: Report from Study
  Country: CA (occurrence: CA)
  Receive Date: 20131126
  Receipt Date: 20200523
  Transmission Date: 20200714
  Serious: Yes (Other)
  Sender: FDA-Public Use
  Company Number: CA-ROCHE-1134838

PATIENT
  Age: 38 Year
  Sex: Female
  Weight: 79 kg

DRUGS (23)
  1. ACTEMRA [Suspect]
     Active Substance: TOCILIZUMAB
     Dosage: START DATE: AFTER TWO WEEKS OF 24/JUL/2015
     Route: 042
  2. ACTEMRA [Suspect]
     Active Substance: TOCILIZUMAB
     Route: 042
     Dates: start: 20181025, end: 20190730
  3. AVAPRO [Concomitant]
     Active Substance: IRBESARTAN
  4. PREDNISONE. [Suspect]
     Active Substance: PREDNISONE
     Indication: PRODUCT USED FOR UNKNOWN INDICATION
     Route: 065
  5. DILAUDID [Concomitant]
     Active Substance: HYDROMORPHONE HYDROCHLORIDE
  6. ACTEMRA [Suspect]
     Active Substance: TOCILIZUMAB
     Route: 042
     Dates: start: 20131223, end: 20150115
  7. ACTEMRA [Suspect]
     Active Substance: TOCILIZUMAB
     Route: 042
     Dates: start: 20170802
  8. ACTONEL [Concomitant]
     Active Substance: RISEDRONATE SODIUM
  9. ATIVAN [Concomitant]
     Active Substance: LORAZEPAM
     Route: 065
  10. ACTEMRA [Suspect]
     Active Substance: TOCILIZUMAB
     Route: 042
     Dates: start: 20151021, end: 20161005
  11. ACTEMRA [Suspect]
     Active Substance: TOCILIZUMAB
     Route: 042
     Dates: start: 20190827, end: 20191015
  12. ACTEMRA [Suspect]
     Active Substance: TOCILIZUMAB
     Route: 042
     Dates: start: 20191203
  13. CARBOCAL [Concomitant]
     Active Substance: CALCIUM CARBONATE
  14. DESYREL [Concomitant]
     Active Substance: TRAZODONE HYDROCHLORIDE
     Route: 065
  15. ACTEMRA [Suspect]
     Active Substance: TOCILIZUMAB
     Route: 042
     Dates: start: 20150219, end: 20150426
  16. ARAVA [Concomitant]
     Active Substance: LEFLUNOMIDE
  17. CELEXA [Concomitant]
     Active Substance: CITALOPRAM HYDROBROMIDE
     Route: 065
  18. ACTEMRA [Suspect]
     Active Substance: TOCILIZUMAB
     Route: 042
     Dates: start: 20150219
  19. ACTEMRA [Suspect]
     Active Substance: TOCILIZUMAB
     Indication: RHEUMATOID ARTHRITIS
     Route: 058
     Dates: start: 20150508, end: 201507
  20. ACTEMRA [Suspect]
     Active Substance: TOCILIZUMAB
     Indication: RHEUMATOID ARTHRITIS
     Route: 042
     Dates: start: 20120719, end: 20130415
  21. ACTEMRA [Suspect]
     Active Substance: TOCILIZUMAB
     Route: 042
     Dates: start: 20161107
  22. ACTEMRA [Suspect]
     Active Substance: TOCILIZUMAB
     Indication: RHEUMATOID ARTHRITIS
     Route: 042
     Dates: start: 20130517, end: 20131216
  23. NAPROSYN [Concomitant]
     Active Substance: NAPROXEN

REACTIONS (72)
  - Weight increased [Unknown]
  - Infusion related reaction [Unknown]
  - Fall [Unknown]
  - Nausea [Not Recovered/Not Resolved]
  - Fatigue [Not Recovered/Not Resolved]
  - Wound [Unknown]
  - Procedural pain [Not Recovered/Not Resolved]
  - Musculoskeletal stiffness [Not Recovered/Not Resolved]
  - Urinary tract infection [Recovered/Resolved]
  - Arthropathy [Not Recovered/Not Resolved]
  - Spinal osteoarthritis [Not Recovered/Not Resolved]
  - Injection site reaction [Recovered/Resolved]
  - Sinusitis [Recovered/Resolved]
  - Weight decreased [Unknown]
  - Tooth fracture [Unknown]
  - Postoperative wound infection [Not Recovered/Not Resolved]
  - Injection site erythema [Unknown]
  - Loss of personal independence in daily activities [Unknown]
  - Feeling hot [Not Recovered/Not Resolved]
  - Intervertebral disc protrusion [Not Recovered/Not Resolved]
  - Pharyngitis [Recovered/Resolved]
  - Blood pressure diastolic abnormal [Unknown]
  - Diarrhoea [Not Recovered/Not Resolved]
  - Insomnia [Not Recovered/Not Resolved]
  - Pain [Not Recovered/Not Resolved]
  - Ovarian cyst [Not Recovered/Not Resolved]
  - Eczema [Not Recovered/Not Resolved]
  - Depression [Unknown]
  - Myositis [Not Recovered/Not Resolved]
  - Drug ineffective [Unknown]
  - Peripheral swelling [Not Recovered/Not Resolved]
  - Cough [Not Recovered/Not Resolved]
  - Foot fracture [Unknown]
  - Abdominal pain upper [Recovering/Resolving]
  - Gastroenteritis [Not Recovered/Not Resolved]
  - Lymphadenopathy [Not Recovered/Not Resolved]
  - Injection site pruritus [Unknown]
  - Musculoskeletal stiffness [Not Recovered/Not Resolved]
  - Ill-defined disorder [Not Recovered/Not Resolved]
  - Oxygen saturation decreased [Unknown]
  - Blood pressure systolic increased [Unknown]
  - Blood pressure diastolic increased [Unknown]
  - Suicidal ideation [Unknown]
  - Menometrorrhagia [Not Recovered/Not Resolved]
  - Dysphagia [Not Recovered/Not Resolved]
  - Arthritis [Recovered/Resolved]
  - Blood pressure increased [Unknown]
  - Gait disturbance [Not Recovered/Not Resolved]
  - Motor dysfunction [Not Recovered/Not Resolved]
  - Blood pressure increased [Unknown]
  - Heart rate increased [Unknown]
  - Bronchitis [Recovered/Resolved]
  - Intervertebral disc protrusion [Not Recovered/Not Resolved]
  - Arthralgia [Not Recovered/Not Resolved]
  - Rheumatoid arthritis [Not Recovered/Not Resolved]
  - Fatigue [Recovering/Resolving]
  - Nasopharyngitis [Recovered/Resolved]
  - Oedema peripheral [Not Recovered/Not Resolved]
  - Hypoaesthesia [Recovered/Resolved]
  - Infusion site erythema [Recovered/Resolved]
  - Heart rate decreased [Unknown]
  - Nasal congestion [Not Recovered/Not Resolved]
  - Ovarian cyst [Not Recovered/Not Resolved]
  - Malaise [Not Recovered/Not Resolved]
  - Dry throat [Not Recovered/Not Resolved]
  - Pain in extremity [Not Recovered/Not Resolved]
  - Dizziness [Not Recovered/Not Resolved]
  - Alveolar osteitis [Not Recovered/Not Resolved]
  - Pain in extremity [Recovered/Resolved]
  - Migraine [Not Recovered/Not Resolved]
  - Haemorrhoids [Unknown]
  - Nasopharyngitis [Recovered/Resolved]

NARRATIVE: CASE EVENT DATE: 201208
